FAERS Safety Report 13097702 (Version 2)
Quarter: 2017Q1

REPORT INFORMATION
  Report Type: Report from Study
  Country: None (occurrence: NL)
  Receive Date: 20170109
  Receipt Date: 20170121
  Transmission Date: 20170428
  Serious: Yes (Death)
  Sender: FDA-Public Use
  Company Number: NL-ABBVIE-17K-114-1831595-00

PATIENT
  Sex: Male

DRUGS (1)
  1. DUODOPA [Suspect]
     Active Substance: CARBIDOPA\LEVODOPA
     Indication: PARKINSON^S DISEASE
     Dosage: MORNING DOSE: 7.5, CONTINUOUS DOSE:5.0, EXTRA DOSE: 3.0, NIGHT DOSE: 2.3-3.5
     Route: 050
     Dates: start: 20151006

REACTIONS (2)
  - Pneumonia [Fatal]
  - Renal failure [Fatal]
